FAERS Safety Report 17285295 (Version 3)
Quarter: 2020Q1

REPORT INFORMATION
  Report Type: Spontaneous
  Country: RU (occurrence: RU)
  Receive Date: 20200117
  Receipt Date: 20200327
  Transmission Date: 20200409
  Serious: Yes (Hospitalization, Other)
  Sender: FDA-Public Use
  Company Number: RU-BIOGEN-2020BI00827450

PATIENT
  Age: 37 Year
  Sex: Female

DRUGS (1)
  1. TYSABRI [Suspect]
     Active Substance: NATALIZUMAB
     Indication: RELAPSING-REMITTING MULTIPLE SCLEROSIS
     Route: 042
     Dates: start: 20190829, end: 201911

REACTIONS (4)
  - Intentional product misuse [Unknown]
  - Cholecystitis chronic [Unknown]
  - Hepatic enzyme increased [Not Recovered/Not Resolved]
  - Latent tuberculosis [Unknown]

NARRATIVE: CASE EVENT DATE: 20191125
